FAERS Safety Report 5025978-7 (Version None)
Quarter: 2006Q2

REPORT INFORMATION
  Report Type: 
  Country: None (occurrence: None)
  Receive Date: 20060614
  Receipt Date: 20060602
  Transmission Date: 20061013
  Serious: Yes (Hospitalization)
  Sender: FDA-Public Use
  Company Number: US-BRISTOL-MYERS SQUIBB COMPANY-13399357

PATIENT
  Sex: Male
  Weight: 180 kg

DRUGS (11)
  1. ABILIFY [Suspect]
     Indication: SCHIZOPHRENIA, PARANOID TYPE
     Route: 048
     Dates: start: 20060101
  2. GEODON [Concomitant]
  3. RISPERDAL [Concomitant]
  4. NEURONTIN [Concomitant]
  5. DEPAKOTE [Concomitant]
  6. ZESTRIL [Concomitant]
  7. LANTUS [Concomitant]
  8. HALDOL [Concomitant]
     Route: 048
  9. KLONOPIN [Concomitant]
  10. KLONOPIN [Concomitant]
  11. COGENTIN [Concomitant]

REACTIONS (6)
  - AMNESIA [None]
  - CONFUSIONAL STATE [None]
  - LOSS OF CONSCIOUSNESS [None]
  - PSYCHOMOTOR HYPERACTIVITY [None]
  - RENAL PAIN [None]
  - SEXUAL DYSFUNCTION [None]
